FAERS Safety Report 6248298-1 (Version None)
Quarter: 2009Q2

REPORT INFORMATION
  Report Type: 
  Country: None (occurrence: None)
  Receive Date: 20090629
  Receipt Date: 20090617
  Transmission Date: 20091009
  Serious: Yes (Other)
  Sender: FDA-Public Use
  Company Number: PHHY2009JP24411

PATIENT
  Age: 42 Year
  Sex: Female

DRUGS (4)
  1. CYCLOSPORINE [Suspect]
     Indication: ALLOGENIC BONE MARROW TRANSPLANTATION THERAPY
     Dosage: UNK
     Dates: start: 20080301
  2. METHOTREXATE [Concomitant]
     Indication: ALLOGENIC BONE MARROW TRANSPLANTATION THERAPY
     Dosage: UNK
     Dates: start: 20080301
  3. BUSULFAN [Concomitant]
     Indication: ALLOGENIC BONE MARROW TRANSPLANTATION THERAPY
  4. CYCLOPHOSPHAMIDE [Concomitant]
     Indication: ALLOGENIC BONE MARROW TRANSPLANTATION THERAPY

REACTIONS (9)
  - ACUTE GRAFT VERSUS HOST DISEASE IN SKIN [None]
  - CHRONIC GRAFT VERSUS HOST DISEASE [None]
  - HEADACHE [None]
  - INTRACRANIAL VENOUS SINUS THROMBOSIS [None]
  - NAUSEA [None]
  - PLATELET COUNT DECREASED [None]
  - RASH [None]
  - STOMATITIS [None]
  - VOMITING [None]
